FAERS Safety Report 5674860-0 (Version None)
Quarter: 2008Q2

REPORT INFORMATION
  Report Type: 
  Country: None (occurrence: None)
  Receive Date: 20080307
  Receipt Date: 20070828
  Transmission Date: 20081010
  Serious: No
  Sender: FDA-Public Use
  Company Number: 07H-163-0313145-00

PATIENT
  Age: 33 Year
  Sex: Male
  Weight: 88.4514 kg

DRUGS (1)
  1. FENTANYL [Suspect]
     Indication: INDUCTION OF ANAESTHESIA
     Dosage: 100-200 MCG
     Dates: start: 20070828, end: 20070828

REACTIONS (1)
  - SOMNOLENCE [None]
